FAERS Safety Report 5888426-0 (Version None)
Quarter: 2008Q3

REPORT INFORMATION
  Report Type: 
  Country: None (occurrence: None)
  Receive Date: 20080918
  Receipt Date: 20080906
  Transmission Date: 20090109
  Serious: Yes (Congenital Anomaly, Other)
  Sender: FDA-Public Use
  Company Number: US-PFIZER INC-2008076322

PATIENT
  Sex: Female
  Weight: 109 kg

DRUGS (1)
  1. CHANTIX [Suspect]
     Indication: SMOKING CESSATION THERAPY
     Dates: start: 20080702, end: 20080801

REACTIONS (3)
  - AGGRESSION [None]
  - ANGER [None]
  - IMPULSIVE BEHAVIOUR [None]
